FAERS Safety Report 17633168 (Version 1)
Quarter: 2020Q2

REPORT INFORMATION
  Report Type: Spontaneous
  Country: US (occurrence: US)
  Receive Date: 20200406
  Receipt Date: 20200406
  Transmission Date: 20200713
  Serious: Yes (Hospitalization)
  Sender: FDA-Public Use
  Company Number: US-SA-2020SA081359

PATIENT
  Age: 80 Year
  Sex: Male

DRUGS (5)
  1. CABAZITAXEL [Suspect]
     Active Substance: CABAZITAXEL
     Indication: HORMONE-REFRACTORY PROSTATE CANCER
     Dosage: 20 MG/M2, Q3W
     Route: 042
     Dates: start: 20181128, end: 20181128
  2. CABAZITAXEL [Suspect]
     Active Substance: CABAZITAXEL
     Indication: PROSTATE CANCER METASTATIC
     Dosage: 20 MG/M2, Q3W
     Route: 042
     Dates: start: 20190514, end: 20190514
  3. PREDNISONE. [Suspect]
     Active Substance: PREDNISONE
     Dosage: 5 MG, BID
     Route: 048
     Dates: start: 20181106, end: 20190715
  4. ENZALUTAMIDE [Suspect]
     Active Substance: ENZALUTAMIDE
     Indication: HORMONE-REFRACTORY PROSTATE CANCER
     Dosage: 160 MG, QD
     Route: 048
     Dates: start: 20181106, end: 20190310
  5. ENZALUTAMIDE [Suspect]
     Active Substance: ENZALUTAMIDE
     Indication: PROSTATE CANCER METASTATIC

REACTIONS (2)
  - Procedural complication [Recovered/Resolved]
  - Biopsy lung [Unknown]

NARRATIVE: CASE EVENT DATE: 20200311
